FAERS Safety Report 19750125 (Version 1)
Quarter: 2021Q3

REPORT INFORMATION
  Report Type: Spontaneous
  Country: US (occurrence: US)
  Receive Date: 20210826
  Receipt Date: 20210826
  Transmission Date: 20211014
  Serious: Yes (Hospitalization)
  Sender: FDA-Public Use
  Company Number: US-VERTEX PHARMACEUTICALS-2021-012966

PATIENT
  Age: 12 Year
  Sex: Female

DRUGS (1)
  1. KALYDECO [Suspect]
     Active Substance: IVACAFTOR
     Indication: CYSTIC FIBROSIS
     Dosage: 150 MG
     Route: 048

REACTIONS (15)
  - Productive cough [Unknown]
  - Dyspnoea [Unknown]
  - Drug withdrawal syndrome [Unknown]
  - Malaise [Unknown]
  - Pleuritic pain [Unknown]
  - Tachypnoea [Recovered/Resolved]
  - Hypoxia [Recovered/Resolved]
  - Vomiting [Unknown]
  - Pyrexia [Recovered/Resolved]
  - Breath sounds abnormal [Unknown]
  - Pulmonary function test decreased [Recovered/Resolved]
  - Product dose omission issue [Unknown]
  - Leukocytosis [Unknown]
  - Rales [Unknown]
  - Sweat test abnormal [Recovered/Resolved]
